FAERS Safety Report 13932927 (Version 1)
Quarter: 2017Q3

REPORT INFORMATION
  Report Type: Spontaneous
  Country: GB (occurrence: GB)
  Receive Date: 20170904
  Receipt Date: 20170904
  Transmission Date: 20171127
  Serious: Yes (Other)
  Sender: FDA-Public Use
  Company Number: GB-TEVA-787378ACC

PATIENT
  Age: 37 Year
  Sex: Female
  Weight: 57 kg

DRUGS (2)
  1. ARIPIPRAZOLE. [Suspect]
     Active Substance: ARIPIPRAZOLE
     Indication: PSYCHOTIC DISORDER
     Dates: start: 20160401, end: 20160701
  2. ARIPIPRAZOLE. [Suspect]
     Active Substance: ARIPIPRAZOLE
     Indication: PSYCHOTIC DISORDER
     Dates: start: 2011

REACTIONS (1)
  - Menorrhagia [Recovering/Resolving]

NARRATIVE: CASE EVENT DATE: 2011
